FAERS Safety Report 7640206-1 (Version None)
Quarter: 2011Q3

REPORT INFORMATION
  Report Type: 
  Country: None (occurrence: None)
  Receive Date: 20110728
  Receipt Date: 20090402
  Transmission Date: 20111222
  Serious: Yes (Death, Other)
  Sender: FDA-Public Use
  Company Number: US-BAYER-200922736NA

PATIENT
  Sex: Male

DRUGS (13)
  1. TRASYLOL [Suspect]
     Indication: CORONARY ARTERY BYPASS
     Dosage: 50 MG, UNK
     Route: 042
     Dates: start: 20030109
  2. ACETYLSALICYLIC ACID SRT [Concomitant]
     Dosage: 81 MG, QD
     Route: 048
  3. AVANDIA [Concomitant]
     Dosage: 4 MG, QD
     Route: 048
  4. NITROGLYCERIN [Concomitant]
     Dosage: AS NEEDED
     Route: 048
  5. FENTANYL [Concomitant]
  6. SIMVASTATIN [Concomitant]
     Dosage: 20 MG, QD
     Route: 048
  7. ETOMIDATE [Concomitant]
  8. METOPROLOL TARTRATE [Concomitant]
     Dosage: 12.5 MG, BID
     Route: 048
  9. PLAVIX [Concomitant]
     Dosage: 75 MG, QD
     Route: 048
  10. LANSOPRAZOLE [Concomitant]
     Dosage: 30 MG, QD
     Route: 048
  11. EPOGEN [Concomitant]
     Dosage: 10000 U, ONCE A WEEK
  12. VERSED [Concomitant]
  13. ISOSORBIDE DINITRATE [Concomitant]
     Dosage: 10 MG, TID
     Route: 048

REACTIONS (11)
  - PAIN [None]
  - RENAL INJURY [None]
  - EMOTIONAL DISTRESS [None]
  - RENAL FAILURE [None]
  - ANXIETY [None]
  - UNEVALUABLE EVENT [None]
  - STRESS [None]
  - ANHEDONIA [None]
  - INJURY [None]
  - RENAL IMPAIRMENT [None]
  - FEAR [None]
